FAERS Safety Report 4544472-0 (Version None)
Quarter: 2005Q1

REPORT INFORMATION
  Report Type: 
  Country: None (occurrence: None)
  Receive Date: 20050103
  Receipt Date: 20050103
  Transmission Date: 20050727
  Serious: No
  Sender: FDA-Public Use
  Company Number: None

PATIENT
  Sex: Male
  Weight: 81.6475 kg

DRUGS (8)
  1. VIOXX [Suspect]
     Indication: OSTEOARTHRITIS
     Dosage: 25 MGM  DAILY  ORAL
     Route: 048
     Dates: start: 19991202, end: 20040909
  2. CELEBREX [Suspect]
     Dosage: 100 MGM DAILY  ORAL
     Route: 048
     Dates: start: 20040909, end: 20041125
  3. ACTOS [Concomitant]
  4. GLIPIZIDE [Concomitant]
  5. ENALAPRIL [Concomitant]
  6. ATENOLOL [Concomitant]
  7. LIPITOR [Concomitant]
  8. ACIPHEX [Concomitant]

REACTIONS (1)
  - MYOCARDIAL INFARCTION [None]
